FAERS Safety Report 9641771 (Version 1)
Quarter: 2013Q4

REPORT INFORMATION
  Report Type: Spontaneous
  Country: GB (occurrence: GB)
  Receive Date: 20131023
  Receipt Date: 20131023
  Transmission Date: 20140711
  Serious: Yes (Hospitalization)
  Sender: FDA-Public Use
  Company Number: GB-ROCHE-1291306

PATIENT
  Sex: Female
  Weight: 59.5 kg

DRUGS (10)
  1. HERCEPTIN [Suspect]
     Indication: PRODUCT USED FOR UNKNOWN INDICATION
     Dosage: 150MG POWDER FOR SOLUTION, 6 MG/KG
     Route: 065
  2. DIAZEPAM [Concomitant]
     Route: 065
  3. HYDROXYCHLOROQUINE [Concomitant]
     Route: 065
  4. FUROSEMIDE [Concomitant]
     Dosage: 20 MG MORNING
     Route: 065
  5. OMEPRAZOLE [Concomitant]
     Dosage: 20 MG NIGHT
     Route: 065
  6. OXYNORM [Concomitant]
     Route: 065
  7. TEMAZEPAM [Concomitant]
     Dosage: 10 MG AT NIGHT
     Route: 065
  8. PREDNISOLONE [Concomitant]
     Dosage: 15 MG IN MORNING
     Route: 065
  9. PACLITAXEL [Concomitant]
     Route: 065
  10. CITALOPRAM [Concomitant]
     Route: 065

REACTIONS (1)
  - Colitis [Unknown]
